FAERS Safety Report 6718780-9 (Version None)
Quarter: 2010Q2

REPORT INFORMATION
  Report Type: 
  Country: None (occurrence: None)
  Receive Date: 20100511
  Receipt Date: 20100503
  Transmission Date: 20101027
  Serious: No
  Sender: FDA-Public Use
  Company Number: US-BIOGENIDEC-2010BI013307

PATIENT
  Age: 52 Year
  Sex: Female

DRUGS (1)
  1. TYSABRI [Suspect]
     Indication: MULTIPLE SCLEROSIS
     Route: 042
     Dates: start: 20090625

REACTIONS (6)
  - ANIMAL BITE [None]
  - CONTUSION [None]
  - HERPES ZOSTER [None]
  - STRESS [None]
  - SWELLING [None]
  - WOUND [None]
